FAERS Safety Report 22964581 (Version 2)
Quarter: 2023Q4

REPORT INFORMATION
  Report Type: Other
  Country: US (occurrence: US)
  Receive Date: 20230921
  Receipt Date: 20231030
  Transmission Date: 20240110
  Serious: Yes (Hospitalization, Other)
  Sender: FDA-Public Use
  Company Number: US-INTERCEPT-PM2023001663

PATIENT
  Sex: Female

DRUGS (2)
  1. OCALIVA [Suspect]
     Active Substance: OBETICHOLIC ACID
     Indication: Primary biliary cholangitis
     Dosage: 5 MILLIGRAM, QD
     Route: 048
     Dates: start: 20230615, end: 2023
  2. OCALIVA [Suspect]
     Active Substance: OBETICHOLIC ACID
     Dosage: 5 MILLIGRAM, QD
     Route: 048
     Dates: start: 2023

REACTIONS (4)
  - Migraine [Recovering/Resolving]
  - Pneumonia [Recovering/Resolving]
  - Blood electrolytes decreased [Recovering/Resolving]
  - Cardiac ablation [Recovered/Resolved]

NARRATIVE: CASE EVENT DATE: 20230101
